FAERS Safety Report 15530544 (Version 5)
Quarter: 2019Q1

REPORT INFORMATION
  Report Type: Spontaneous
  Country: AU (occurrence: AU)
  Receive Date: 20181018
  Receipt Date: 20190207
  Transmission Date: 20190417
  Serious: Yes (Hospitalization, Other)
  Sender: FDA-Public Use
  Company Number: AU-SA-2018SA285271

PATIENT
  Age: 11 Month

DRUGS (1)
  1. MYOZYME [Suspect]
     Active Substance: ALGLUCOSIDASE ALFA
     Dosage: 20 MG/KG, QOW
     Route: 041

REACTIONS (3)
  - Condition aggravated [Unknown]
  - Continuous positive airway pressure [Unknown]
  - Respiratory tract infection [Unknown]
